FAERS Safety Report 6609173-3 (Version None)
Quarter: 2010Q1

REPORT INFORMATION
  Report Type: 
  Country: None (occurrence: None)
  Receive Date: 20100222
  Receipt Date: 20100210
  Transmission Date: 20100710
  Serious: Yes (Other)
  Sender: FDA-Public Use
  Company Number: TPA2010A00640

PATIENT
  Age: 64 Year
  Sex: Male
  Weight: 102.0593 kg

DRUGS (7)
  1. ACTOS [Suspect]
     Indication: TYPE 2 DIABETES MELLITUS
     Dosage: 45 MG, 3 IN 1 D, PER ORAL; 2005 OR EARLIER
     Route: 048
     Dates: start: 20050101
  2. ACTOS [Suspect]
     Indication: TYPE 2 DIABETES MELLITUS
     Dosage: 45 MG, 3 IN 1 D, PER ORAL; 2005 OR EARLIER
     Route: 048
     Dates: start: 20080210
  3. ZOCOR (ALL OTHER THERAPEUTIC PRODUCTS) [Concomitant]
  4. XANAX [Concomitant]
  5. CATAPRES [Concomitant]
  6. PRILOSEC [Concomitant]
  7. NEURONTIN [Concomitant]

REACTIONS (11)
  - COUGH [None]
  - DEPRESSION [None]
  - FALL [None]
  - JOINT DISLOCATION [None]
  - JOINT SWELLING [None]
  - MYALGIA [None]
  - NASAL CONGESTION [None]
  - OEDEMA PERIPHERAL [None]
  - SINUSITIS [None]
  - TOOTH DISORDER [None]
  - UPPER LIMB FRACTURE [None]
